FAERS Safety Report 6923453-3 (Version None)
Quarter: 2010Q3

REPORT INFORMATION
  Report Type: 
  Country: None (occurrence: None)
  Receive Date: 20100813
  Receipt Date: 20100726
  Transmission Date: 20110219
  Serious: Yes (Other)
  Sender: FDA-Public Use
  Company Number: NL-BAYER-201033776GPV

PATIENT
  Age: 31 Year
  Sex: Female

DRUGS (2)
  1. MIRENA [Suspect]
     Indication: PRODUCT USED FOR UNKNOWN INDICATION
     Route: 015
     Dates: start: 20100101
  2. MIRENA [Suspect]
     Route: 015
     Dates: start: 20100101, end: 20100601

REACTIONS (4)
  - DEPRESSION [None]
  - HEARING IMPAIRED [None]
  - SUICIDAL IDEATION [None]
  - UTERINE PERFORATION [None]
